FAERS Safety Report 18251856 (Version 1)
Quarter: 2020Q3

REPORT INFORMATION
  Report Type: Spontaneous
  Country: US (occurrence: US)
  Receive Date: 20200506
  Receipt Date: 20200506
  Transmission Date: 20201103
  Serious: Yes (Death, Other)
  Sender: FDA-Public Use
  Company Number: None

PATIENT
  Age: 5 Decade
  Sex: Male

DRUGS (3)
  1. METHYLPREDNISOLONE. [Suspect]
     Active Substance: METHYLPREDNISOLONE
     Indication: COVID-19
     Route: 042
     Dates: start: 2020
  2. INTERFERON ALFA?2B [Suspect]
     Active Substance: INTERFERON ALFA-2B
     Indication: COVID-19
     Dosage: ?          OTHER DOSE:5 MILLION UNITS;?
     Route: 055
     Dates: start: 2020
  3. LOPINAVIR?RITONAVIR [Suspect]
     Active Substance: LOPINAVIR\RITONAVIR
     Indication: COVID-19
     Route: 048
     Dates: start: 2020

REACTIONS (16)
  - Hypoxia [None]
  - Hepatic steatosis [None]
  - Drug-induced liver injury [None]
  - Product use in unapproved indication [None]
  - Dyspnoea [None]
  - Drug ineffective [None]
  - Pulmonary oedema [None]
  - Middle East respiratory syndrome [None]
  - Fatigue [None]
  - Acute respiratory distress syndrome [None]
  - Severe acute respiratory syndrome [None]
  - Lung infiltration [None]
  - Cough [None]
  - Diffuse alveolar damage [None]
  - Cardiac arrest [None]
  - Skin exfoliation [None]
